FAERS Safety Report 12840683 (Version 1)
Quarter: 2016Q4

REPORT INFORMATION
  Report Type: Spontaneous
  Country: US (occurrence: US)
  Receive Date: 20161012
  Receipt Date: 20161012
  Transmission Date: 20170207
  Serious: No
  Sender: FDA-Public Use
  Company Number: US-ASTRAZENECA-2016SF01206

PATIENT
  Age: 77 Year
  Sex: Female
  Weight: 86.2 kg

DRUGS (3)
  1. UNSPECIFIED MEDICATIONS [Concomitant]
     Active Substance: UNSPECIFIED INGREDIENT
  2. RHINOCORT [Suspect]
     Active Substance: BUDESONIDE
     Indication: EAR DISCOMFORT
     Dosage: 2.0DF UNKNOWN
     Route: 045
  3. RHINOCORT [Suspect]
     Active Substance: BUDESONIDE
     Indication: SINUS CONGESTION
     Dosage: 2.0DF UNKNOWN
     Route: 045

REACTIONS (3)
  - Palpitations [Recovered/Resolved]
  - Off label use [Recovered/Resolved]
  - Product use issue [Recovered/Resolved]
